FAERS Safety Report 8302598-X (Version None)
Quarter: 2012Q1

REPORT INFORMATION
  Report Type: 
  Country: None (occurrence: None)
  Receive Date: 20120326
  Receipt Date: 20110316
  Transmission Date: 20120608
  Serious: Yes (Hospitalization)
  Sender: FDA-Public Use
  Company Number: PHHY2011US19930

PATIENT
  Age: 28 Year
  Sex: Male

DRUGS (6)
  1. COLACE (DOCUSATE SODIUM) [Concomitant]
  2. CONFISEN [Concomitant]
  3. MS CONTIN [Concomitant]
  4. REGLAN [Concomitant]
  5. HYDROCODONE BITARTRATE [Concomitant]
  6. TASIGNA [Suspect]
     Indication: GASTROINTESTINAL STROMAL TUMOUR
     Dosage: 400 MG, BID
     Dates: start: 20101201

REACTIONS (2)
  - PAIN [None]
  - MALAISE [None]
